FAERS Safety Report 21107225 (Version 9)
Quarter: 2024Q2

REPORT INFORMATION
  Report Type: Spontaneous
  Country: US (occurrence: US)
  Receive Date: 20220720
  Receipt Date: 20240509
  Transmission Date: 20240715
  Serious: Yes (Other)
  Sender: FDA-Public Use
  Company Number: US-PFIZER INC-2017335042

PATIENT
  Age: 16 Year
  Sex: Male

DRUGS (4)
  1. BENEFIX [Suspect]
     Active Substance: COAGULATION FACTOR IX RECOMBINANT HUMAN\ISOPROPYL ALCOHOL
     Indication: Factor IX deficiency
     Dosage: 1920 IU (+/-10%) FOR MINOR BLEEDS + 3840 IU (+/- 10%) FOR MAJOR BLEEDS AS NEEDED
  2. BENEFIX [Suspect]
     Active Substance: COAGULATION FACTOR IX RECOMBINANT HUMAN\ISOPROPYL ALCOHOL
     Dosage: 1 VIAL (3000 IU +/- 10%) D. AS NEEDED FOR MINOR BLEEDS AND 2 V (6000 UI +/- 10%) D FOR MAJOR BLEEDS
     Route: 042
  3. BENEFIX [Suspect]
     Active Substance: COAGULATION FACTOR IX RECOMBINANT HUMAN\ISOPROPYL ALCOHOL
     Dosage: 5000 UNITS
     Route: 042
  4. BENEFIX [Suspect]
     Active Substance: COAGULATION FACTOR IX RECOMBINANT HUMAN\ISOPROPYL ALCOHOL
     Dosage: 3200 UNITS(+/-10% ) IV DAILY PRN (AS NEEDED), 6400 UNITS(+/-10% ) IV DAILY PRN (AS NEEDED)
     Route: 042

REACTIONS (5)
  - Haemorrhage [Not Recovered/Not Resolved]
  - Epistaxis [Unknown]
  - Joint injury [Unknown]
  - Pain [Not Recovered/Not Resolved]
  - Product prescribing issue [Unknown]

NARRATIVE: CASE EVENT DATE: 20231002
